FAERS Safety Report 9496153 (Version 1)
Quarter: 2013Q3

REPORT INFORMATION
  Report Type: Spontaneous
  Country: FR (occurrence: None)
  Receive Date: 20130829
  Receipt Date: 20130829
  Transmission Date: 20140515
  Serious: Yes (Other)
  Sender: FDA-Public Use
  Company Number: SYM-2013-09133

PATIENT
  Age: 66 Year
  Sex: Male

DRUGS (4)
  1. FLAGYL [Suspect]
     Indication: PRODUCT USED FOR UNKNOWN INDICATION
     Dosage: 500 MG, 3 IN  1 D, ORAL
     Route: 048
     Dates: start: 2013, end: 2013
  2. ACETORPHAN [Concomitant]
  3. LOPERAMIDE [Concomitant]
  4. METEOSPASMYL [Suspect]

REACTIONS (1)
  - Diabetes mellitus inadequate control [None]
